FAERS Safety Report 25081354 (Version 3)
Quarter: 2025Q2

REPORT INFORMATION
  Report Type: Report from Study
  Country: DE (occurrence: DE)
  Receive Date: 20250316
  Receipt Date: 20250509
  Transmission Date: 20250716
  Serious: Yes (Other)
  Sender: JOHNSON AND JOHNSON
  Company Number: DE-JNJFOC-20250331995

PATIENT
  Age: 59 Year
  Sex: Female

DRUGS (8)
  1. GUSELKUMAB [Suspect]
     Active Substance: GUSELKUMAB
     Indication: Psoriatic arthropathy
     Dosage: LAST ADMINISTERED DATE: 14-FEB-2023
     Route: 065
     Dates: start: 20220629, end: 20230214
  2. GUSELKUMAB [Suspect]
     Active Substance: GUSELKUMAB
  3. GUSELKUMAB [Suspect]
     Active Substance: GUSELKUMAB
  4. METHOTREXATE [Concomitant]
     Active Substance: METHOTREXATE
     Indication: Product used for unknown indication
     Route: 058
     Dates: start: 20221108
  5. ENSTILARSCHAUM [Concomitant]
     Indication: Psoriatic arthropathy
     Route: 062
     Dates: start: 202212
  6. NOVALGIN [Concomitant]
     Indication: Psoriatic arthropathy
     Route: 048
     Dates: start: 2019
  7. PANTOPRAZOLE SODIUM [Concomitant]
     Active Substance: PANTOPRAZOLE SODIUM
     Indication: Prophylaxis
     Route: 048
     Dates: start: 2019
  8. DAIVONEX CREME [Concomitant]
     Indication: Psoriatic arthropathy
     Route: 062

REACTIONS (2)
  - Pneumonia [Recovered/Resolved]
  - COVID-19 [Recovered/Resolved]

NARRATIVE: CASE EVENT DATE: 20230214
